FAERS Safety Report 26157821 (Version 1)
Quarter: 2025Q4

REPORT INFORMATION
  Report Type: Spontaneous
  Country: US (occurrence: None)
  Receive Date: 20251215
  Receipt Date: 20251215
  Transmission Date: 20260117
  Serious: No
  Sender: FDA-CTU
  Company Number: None

PATIENT
  Age: 61 Year
  Sex: Male
  Weight: 76 kg

DRUGS (1)
  1. ADALIMUMAB-BWWD [Suspect]
     Active Substance: ADALIMUMAB-BWWD
     Indication: Rheumatoid arthritis
     Route: 058
     Dates: start: 20250811, end: 20250908

REACTIONS (2)
  - Drug hypersensitivity [None]
  - Influenza like illness [None]

NARRATIVE: CASE EVENT DATE: 20251003
